FAERS Safety Report 5688328-9 (Version None)
Quarter: 2008Q1

REPORT INFORMATION
  Report Type: 
  Country: None (occurrence: None)
  Receive Date: 20080328
  Receipt Date: 20080328
  Transmission Date: 20080703
  Serious: No
  Sender: FDA-Public Use
  Company Number: None

PATIENT
  Age: 68 Year
  Sex: Female
  Weight: 55.3388 kg

DRUGS (4)
  1. MACROBID [Suspect]
     Indication: URINARY TRACT INFECTION
     Dosage: 100MG BID OTIC
     Route: 001
     Dates: start: 20080324, end: 20080326
  2. VITMANS C,D,E [Concomitant]
  3. ACTONEL [Concomitant]
  4. MUNICEX [Concomitant]

REACTIONS (1)
  - RASH GENERALISED [None]
